FAERS Safety Report 9419272 (Version 1)
Quarter: 2013Q3

REPORT INFORMATION
  Report Type: Spontaneous
  Country: US (occurrence: US)
  Receive Date: 20130725
  Receipt Date: 20130725
  Transmission Date: 20140515
  Serious: No
  Sender: FDA-Public Use
  Company Number: US-GLAXOSMITHKLINE-A0996482A

PATIENT
  Age: 25 Year
  Sex: Female

DRUGS (3)
  1. LAMICTAL XR [Suspect]
     Indication: CONVULSION
     Dosage: 200MG PER DAY
     Route: 048
  2. PRENATAL VITAMIN [Concomitant]
  3. AMBIEN [Concomitant]

REACTIONS (1)
  - Exposure during pregnancy [Unknown]
